FAERS Safety Report 5280292-X (Version None)
Quarter: 2007Q1

REPORT INFORMATION
  Report Type: 
  Country: None (occurrence: None)
  Receive Date: 20070329
  Receipt Date: 20070320
  Transmission Date: 20070707
  Serious: Yes (Hospitalization)
  Sender: FDA-Public Use
  Company Number: JP-GLAXOSMITHKLINE-B0459774A

PATIENT
  Age: 54 Year
  Sex: Male
  Weight: 58 kg

DRUGS (13)
  1. CEFAZOLIN [Suspect]
     Indication: OSTEOMYELITIS
     Dosage: 1.667G THREE TIMES PER DAY
     Route: 042
     Dates: start: 20070126, end: 20070207
  2. CEFAZOLIN [Suspect]
     Dosage: 2G TWICE PER DAY
     Route: 042
     Dates: start: 20070213, end: 20070214
  3. ASPIRIN [Concomitant]
     Route: 048
  4. ARTIST [Concomitant]
  5. LOXONIN [Concomitant]
     Dates: end: 20070213
  6. MUCOSTA [Concomitant]
     Route: 048
  7. VANCOMYCIN [Concomitant]
     Dates: start: 20070207, end: 20070213
  8. HYPEN [Concomitant]
     Dosage: 400MG PER DAY
     Route: 048
  9. PREDNISOLONE [Concomitant]
     Dates: start: 20070220
  10. MEVALOTIN [Concomitant]
     Dates: start: 20070201
  11. ZANTAC [Concomitant]
     Dates: start: 20070201
  12. TICLOPIDINE HCL [Concomitant]
  13. CONIEL [Concomitant]
     Dates: start: 20070131

REACTIONS (3)
  - CHILLS [None]
  - DRUG HYPERSENSITIVITY [None]
  - PYREXIA [None]
